FAERS Safety Report 22660370 (Version 1)
Quarter: 2023Q2

REPORT INFORMATION
  Report Type: Spontaneous
  Country: CA (occurrence: CA)
  Receive Date: 20230630
  Receipt Date: 20230630
  Transmission Date: 20230721
  Serious: Yes (Death, Other)
  Sender: FDA-Public Use
  Company Number: CA-AMGEN-CANSP2023111223

PATIENT
  Age: 64 Year
  Sex: Male

DRUGS (7)
  1. XGEVA [Suspect]
     Active Substance: DENOSUMAB
     Indication: Product used for unknown indication
     Route: 065
  2. DILAUDID [Concomitant]
     Active Substance: HYDROMORPHONE HYDROCHLORIDE
     Dosage: 3 MILLIGRAM (EVERY 30 MIN PRN)
     Route: 058
  3. ATIVAN [Concomitant]
     Active Substance: LORAZEPAM
     Dosage: UNK UNK, TID (0.5 TO 1 MG SUBLINGUAL PRN)
     Route: 060
  4. ELIQUIS [Concomitant]
     Active Substance: APIXABAN
     Dosage: 5 MILLIGRAM, BID
     Route: 048
  5. METHADONE [Concomitant]
     Active Substance: METHADONE HYDROCHLORIDE
     Dosage: 10 MILLIGRAM, BID
     Route: 048
  6. METOCLOPRAMIDE HYDROCHLORIDE [Concomitant]
     Active Substance: METOCLOPRAMIDE HYDROCHLORIDE
     Dosage: 10 MILLIGRAM, QD
     Route: 048
  7. DEXAMETHASONE [Concomitant]
     Active Substance: DEXAMETHASONE
     Dosage: 8 MILLIGRAM, QD
     Route: 048

REACTIONS (14)
  - Prostate cancer [Fatal]
  - Hallucination [Unknown]
  - Dyspnoea [Not Recovered/Not Resolved]
  - Back pain [Unknown]
  - Flank pain [Unknown]
  - Nausea [Recovering/Resolving]
  - Decreased appetite [Unknown]
  - Diarrhoea [Unknown]
  - Incontinence [Unknown]
  - Mobility decreased [Unknown]
  - Gait disturbance [Unknown]
  - Somnolence [Unknown]
  - Myoclonus [Unknown]
  - Anxiety [Unknown]
